FAERS Safety Report 20350256 (Version 1)
Quarter: 2022Q1

REPORT INFORMATION
  Report Type: Spontaneous
  Country: US (occurrence: None)
  Receive Date: 20220117
  Receipt Date: 20220117
  Transmission Date: 20220423
  Serious: Yes (unspecified)
  Sender: FDA-Public Use
  Company Number: None

PATIENT
  Age: 17 Year
  Sex: Male
  Weight: 67.5 kg

DRUGS (11)
  1. INFLECTRA [Suspect]
     Active Substance: INFLIXIMAB-DYYB
     Indication: Colitis ulcerative
     Dosage: OTHER FREQUENCY : MONTHLY;?
     Route: 042
     Dates: start: 20210704, end: 20211227
  2. REMICADE [Concomitant]
     Active Substance: INFLIXIMAB
  3. ZOLMATRIPTAN [Concomitant]
  4. URSODIOL [Concomitant]
     Active Substance: URSODIOL
  5. OTESLA [Concomitant]
  6. ZOMETA [Concomitant]
     Active Substance: ZOLEDRONIC ACID
  7. CALCIUM [Concomitant]
     Active Substance: CALCIUM
  8. IBUPROFEN [Concomitant]
     Active Substance: IBUPROFEN
  9. TYLENOL [Concomitant]
     Active Substance: ACETAMINOPHEN
  10. ZYRTEC [Concomitant]
     Active Substance: CETIRIZINE HYDROCHLORIDE
  11. HYDROCORTISONE [Concomitant]
     Active Substance: HYDROCORTISONE

REACTIONS (6)
  - Peripheral swelling [None]
  - Skin discolouration [None]
  - Peripheral swelling [None]
  - Skin mass [None]
  - Hepatic enzyme increased [None]
  - Autoimmune disorder [None]

NARRATIVE: CASE EVENT DATE: 20210927
